FAERS Safety Report 8074204-3 (Version None)
Quarter: 2012Q1

REPORT INFORMATION
  Report Type: 
  Country: None (occurrence: None)
  Receive Date: 20120126
  Receipt Date: 20120114
  Transmission Date: 20120608
  Serious: Yes (Death)
  Sender: FDA-Public Use
  Company Number: US-PFIZER INC-2012011118

PATIENT
  Sex: Female
  Weight: 76 kg

DRUGS (8)
  1. XELODA [Concomitant]
     Indication: DISEASE PROGRESSION
     Dosage: 350 MG, DAILY
     Route: 048
     Dates: start: 20090521, end: 20090611
  2. PEPCID [Concomitant]
     Indication: HYPERCHLORHYDRIA
     Dosage: 20 MG, AS NEEDED
     Route: 048
  3. HYDROCHLOROTHIAZIDE [Concomitant]
     Indication: HYPERTENSION
     Dosage: 25 MG, DAILY
     Route: 048
     Dates: start: 20080129
  4. SIMVASTATIN [Concomitant]
     Indication: HYPERLIPIDAEMIA
     Dosage: 20 MG, DAILY
     Route: 048
     Dates: start: 20070725
  5. NORVASC [Concomitant]
     Indication: HYPERTENSION
     Dosage: 10 MG, DAILY
     Route: 048
     Dates: start: 20071119
  6. AMLODIPINE [Concomitant]
     Indication: HYPERTENSION
     Dosage: 10 MG, DAILY
     Route: 048
     Dates: start: 20080131
  7. LORATADINE [Concomitant]
     Indication: SEASONAL ALLERGY
     Dosage: 10 MG, DAILY, AS NEEDED
     Route: 048
     Dates: start: 20080129
  8. EXEMESTANE [Suspect]
     Indication: BREAST CANCER
     Dosage: UNK, 1X/DAY
     Route: 048
     Dates: end: 20090423

REACTIONS (2)
  - BREAST CANCER [None]
  - DISEASE PROGRESSION [None]
